FAERS Safety Report 23640385 (Version 1)
Quarter: 2024Q1

REPORT INFORMATION
  Report Type: Spontaneous
  Country: US (occurrence: US)
  Receive Date: 20240317
  Receipt Date: 20240317
  Transmission Date: 20240410
  Serious: No
  Sender: FDA-Public Use
  Company Number: US-BAUSCHBL-2024BNL003196

PATIENT
  Age: 87 Year
  Sex: Female

DRUGS (1)
  1. MIEBO [Suspect]
     Active Substance: PERFLUOROHEXYLOCTANE
     Indication: Dry eye
     Route: 047
     Dates: start: 202312

REACTIONS (5)
  - Foreign body sensation in eyes [Unknown]
  - Eye irritation [Unknown]
  - Product use issue [Unknown]
  - Product packaging quantity issue [Unknown]
  - Inappropriate schedule of product administration [Unknown]
